FAERS Safety Report 6693171-8 (Version None)
Quarter: 2010Q2

REPORT INFORMATION
  Report Type: 
  Country: None (occurrence: None)
  Receive Date: 20100422
  Receipt Date: 20100415
  Transmission Date: 20101027
  Serious: Yes (Death, Other)
  Sender: FDA-Public Use
  Company Number: IT-ABBOTT-10P-083-0635781-00

PATIENT
  Sex: Male

DRUGS (2)
  1. HUMIRA [Suspect]
     Indication: RHEUMATOID ARTHRITIS
     Route: 058
     Dates: start: 20100214, end: 20100228
  2. METOTREXATO [Concomitant]
     Indication: DRUG USE FOR UNKNOWN INDICATION
     Route: 048

REACTIONS (4)
  - ACUTE HEPATIC FAILURE [None]
  - HAEMODYNAMIC INSTABILITY [None]
  - PULMONARY ARTERY THROMBOSIS [None]
  - VIRAL TEST NEGATIVE [None]
